FAERS Safety Report 10245063 (Version 1)
Quarter: 2014Q2

REPORT INFORMATION
  Report Type: Spontaneous
  Country: US (occurrence: US)
  Receive Date: 20140618
  Receipt Date: 20140618
  Transmission Date: 20141212
  Serious: No
  Sender: FDA-Public Use
  Company Number: US-GALDERMA-US14000966

PATIENT
  Age: 65 Year
  Sex: Female

DRUGS (11)
  1. MIRVASO (BRIMONIDINE) TOPICAL GEL, 0.33% [Suspect]
     Indication: ROSACEA
     Dosage: 0.33%
     Route: 061
     Dates: start: 201402, end: 20140313
  2. SKINMEDICA COMPLEX [Suspect]
     Indication: ROSACEA
     Route: 061
     Dates: start: 201402
  3. EUCERIN REDNESS RELIEF [Concomitant]
     Indication: ROSACEA
     Route: 061
     Dates: start: 201402, end: 201403
  4. PURPOSE FACIAL SOAP [Concomitant]
     Indication: THERAPEUTIC SKIN CARE TOPICAL
     Route: 061
  5. CETAPHIL DAILY ADVANCE ULTRA HYDRATING LOTION [Concomitant]
     Indication: DRY SKIN PROPHYLAXIS
     Route: 061
  6. CLONAZEPAM [Concomitant]
  7. MULTIVITAMIN [Concomitant]
  8. CALCIUM [Concomitant]
  9. FISH OIL [Concomitant]
  10. FACE POWDER [Concomitant]
     Route: 061
  11. CETAPHIL [Concomitant]
     Route: 061

REACTIONS (5)
  - Rash macular [Recovered/Resolved]
  - Feeling hot [Recovered/Resolved]
  - Erythema [Recovered/Resolved]
  - Flushing [Recovered/Resolved]
  - Off label use [Recovered/Resolved]
